FAERS Safety Report 4436251-X (Version None)
Quarter: 2004Q3

REPORT INFORMATION
  Report Type: 
  Country: None (occurrence: None)
  Receive Date: 20040830
  Receipt Date: 20040611
  Transmission Date: 20050211
  Serious: Yes (Other)
  Sender: FDA-Public Use
  Company Number: US-BRISTOL-MYERS SQUIBB COMPANY-12613139

PATIENT
  Age: 56 Year
  Sex: Male

DRUGS (15)
  1. ERBITUX [Suspect]
     Indication: OESOPHAGEAL CARCINOMA
     Dosage: FIRST DOSE, REC'D APPROX. 100 MG (15 MINUTES)
     Route: 042
     Dates: start: 20040611, end: 20040611
  2. EPINEPHRINE [Suspect]
     Dosage: 0.3 MG SQ, ^.1^ GIVEN IV
     Route: 058
     Dates: start: 20040611, end: 20040611
  3. TYLENOL [Concomitant]
     Indication: PREMEDICATION
     Route: 048
     Dates: start: 20040611, end: 20040611
  4. BENADRYL [Concomitant]
     Indication: PREMEDICATION
     Route: 042
     Dates: start: 20040611, end: 20040611
  5. DECADRON [Concomitant]
     Indication: PREMEDICATION
     Route: 042
     Dates: start: 20040611, end: 20040611
  6. COUMADIN [Concomitant]
  7. COMPAZINE [Concomitant]
  8. ATIVAN [Concomitant]
  9. DURAGESIC [Concomitant]
  10. ZOFRAN [Concomitant]
  11. MS CONTIN [Concomitant]
  12. CARAFATE [Concomitant]
  13. PREVACID [Concomitant]
     Dosage: DAILY
  14. VITAMIN C [Concomitant]
  15. IRON [Concomitant]

REACTIONS (3)
  - BLOOD PRESSURE INCREASED [None]
  - CHEST PAIN [None]
  - URTICARIA [None]
